FAERS Safety Report 22331824 (Version 1)
Quarter: 2023Q2

REPORT INFORMATION
  Report Type: Spontaneous
  Country: US (occurrence: US)
  Receive Date: 20230517
  Receipt Date: 20230517
  Transmission Date: 20230721
  Serious: No
  Sender: FDA-Public Use
  Company Number: US-SA-SAC20230516001521

PATIENT
  Sex: Male
  Weight: 95 kg

DRUGS (16)
  1. FABRAZYME [Suspect]
     Active Substance: AGALSIDASE BETA
     Indication: Fabry^s disease
     Dosage: 85 MG QOW
     Route: 042
     Dates: start: 20060606
  2. PREDNISONE [Concomitant]
     Active Substance: PREDNISONE
  3. HEPARIN [Concomitant]
     Active Substance: HEPARIN SODIUM
  4. DIPHENHYDRAMINE HYDROCHLORIDE [Concomitant]
     Active Substance: DIPHENHYDRAMINE HYDROCHLORIDE
  5. EPINEPHRINE [Concomitant]
     Active Substance: EPINEPHRINE
  6. IBUPROFEN [Concomitant]
     Active Substance: IBUPROFEN
  7. DICYCLOMINE HYDROCHLORIDE [Concomitant]
     Active Substance: DICYCLOMINE HYDROCHLORIDE
  8. TEGRETOL [Concomitant]
     Active Substance: CARBAMAZEPINE
  9. DOCUSATE SODIUM [Concomitant]
     Active Substance: DOCUSATE SODIUM
  10. WATER FOR INJECTION [Concomitant]
     Active Substance: WATER
  11. LUBIPROSTONE [Concomitant]
     Active Substance: LUBIPROSTONE
  12. CYCLOBENZAPRINE HYDROCHLORIDE [Concomitant]
     Active Substance: CYCLOBENZAPRINE HYDROCHLORIDE
  13. SODIUM CHLORIDE [Concomitant]
     Active Substance: SODIUM CHLORIDE
  14. MORPHINE SULFATE [Concomitant]
     Active Substance: MORPHINE SULFATE
  15. NORTRIPTYLINE HYDROCHLORIDE [Concomitant]
     Active Substance: NORTRIPTYLINE HYDROCHLORIDE
  16. SODIUM CHLORIDE [Concomitant]
     Active Substance: SODIUM CHLORIDE

REACTIONS (1)
  - Fall [Unknown]
